FAERS Safety Report 8457323-9 (Version None)
Quarter: 2012Q2

REPORT INFORMATION
  Report Type: 
  Country: None (occurrence: None)
  Receive Date: 20120621
  Receipt Date: 20120615
  Transmission Date: 20120825
  Serious: Yes (Hospitalization)
  Sender: FDA-Public Use
  Company Number: JP-PFIZER INC-2012129587

PATIENT
  Age: 49 Year
  Sex: Female
  Weight: 56 kg

DRUGS (3)
  1. EPIRUBICIN HYDROCHLORIDE [Suspect]
     Indication: BREAST CANCER
     Dosage: 160 MG, 1X/DAY
     Route: 041
     Dates: start: 20120528
  2. CYCLOPHOSPHAMIDE [Suspect]
     Indication: BREAST CANCER
     Dosage: 800 MG, 1X/DAY
     Route: 041
     Dates: start: 20120528
  3. FLUOROURACIL [Suspect]
     Indication: BREAST CANCER
     Dosage: 800 MG, 1X/DAY
     Route: 041
     Dates: start: 20120528

REACTIONS (3)
  - BLOOD PRESSURE DECREASED [None]
  - DIZZINESS [None]
  - DECREASED APPETITE [None]
